FAERS Safety Report 15525370 (Version 3)
Quarter: 2018Q4

REPORT INFORMATION
  Report Type: Spontaneous
  Country: CN (occurrence: CN)
  Receive Date: 20181019
  Receipt Date: 20181126
  Transmission Date: 20190205
  Serious: Yes (Other)
  Sender: FDA-Public Use
  Company Number: CN-NOVOPROD-627086

PATIENT
  Sex: Male

DRUGS (2)
  1. NOVOLIN R [Suspect]
     Active Substance: INSULIN HUMAN
     Indication: TYPE 2 DIABETES MELLITUS
     Dosage: UNK
     Route: 065
     Dates: start: 20181009
  2. NOVOLIN R [Suspect]
     Active Substance: INSULIN HUMAN
     Indication: SUICIDE ATTEMPT
     Dosage: UNK
     Route: 065
     Dates: start: 20181009

REACTIONS (4)
  - Suicide attempt [Unknown]
  - Dizziness [Unknown]
  - Hyperhidrosis [Unknown]
  - Intentional overdose [Unknown]

NARRATIVE: CASE EVENT DATE: 20181009
